FAERS Safety Report 8560880-5 (Version None)
Quarter: 2012Q3

REPORT INFORMATION
  Report Type: 
  Country: None (occurrence: None)
  Receive Date: 20120727
  Receipt Date: 20120727
  Transmission Date: 20120928
  Serious: Yes (Hospitalization)
  Sender: FDA-Public Use
  Company Number: None

PATIENT
  Age: 75 Year
  Sex: Male
  Weight: 8.8 kg

DRUGS (15)
  1. COUMADIN [Suspect]
     Indication: PULMONARY EMBOLISM
     Dosage: 5 MG / 2.5 MG THSS/MWF PO RECENT
     Route: 048
  2. LOZOL [Concomitant]
  3. ATIVAN [Concomitant]
  4. NARRATIVE PARTIALLY ILLEGIBLE CONCOMITANT ( HYDRO OXYCODONE) [Concomitant]
  5. ACEBUTOL [Concomitant]
  6. FLOMAX [Concomitant]
  7. TIMOLOL MALEATE [Concomitant]
  8. MAGNESIUM [Concomitant]
  9. PROCHLORPERAZINE [Concomitant]
  10. POTASSIUM CHLORIDE [Concomitant]
  11. ASPIRIN [Suspect]
     Indication: CORONARY ARTERY DISEASE
     Dosage: 81MG DAILY PO CHRONIC
     Route: 048
  12. LIPITOR [Concomitant]
  13. M.V.I. [Concomitant]
  14. DIOVAN [Concomitant]
  15. AMLODIPINE [Concomitant]

REACTIONS (2)
  - INTERNATIONAL NORMALISED RATIO INCREASED [None]
  - LOWER GASTROINTESTINAL HAEMORRHAGE [None]
